FAERS Safety Report 9271847 (Version 1)
Quarter: 2013Q2

REPORT INFORMATION
  Report Type: Spontaneous
  Country: GR (occurrence: GR)
  Receive Date: 20130506
  Receipt Date: 20130506
  Transmission Date: 20140414
  Serious: Yes (Death, Other)
  Sender: FDA-Public Use
  Company Number: GR-PFIZER INC-2013115711

PATIENT
  Age: 65 Year
  Sex: Male

DRUGS (1)
  1. TYGACIL [Suspect]
     Indication: INFECTION
     Dosage: 50 MG, 2X/DAY
     Route: 042
     Dates: start: 2013

REACTIONS (1)
  - Pancreatitis [Fatal]
